FAERS Safety Report 6812928-3 (Version None)
Quarter: 2010Q2

REPORT INFORMATION
  Report Type: 
  Country: None (occurrence: None)
  Receive Date: 20100628
  Receipt Date: 20100614
  Transmission Date: 20101027
  Serious: Yes (Hospitalization)
  Sender: FDA-Public Use
  Company Number: 7006333

PATIENT
  Age: 11 Year
  Sex: Male

DRUGS (3)
  1. SAIZEN [Suspect]
     Indication: GROWTH HORMONE DEFICIENCY
     Dosage: 3.3 MG
     Dates: start: 20091224, end: 20100401
  2. SAIZEN [Suspect]
     Indication: GROWTH HORMONE DEFICIENCY
     Dosage: 3.3 MG
     Dates: start: 20100101
  3. HUMIRA [Suspect]
     Indication: CROHN'S DISEASE
     Dates: start: 20081001

REACTIONS (1)
  - PNEUMONIA LEGIONELLA [None]
